FAERS Safety Report 6769562-3 (Version None)
Quarter: 2010Q2

REPORT INFORMATION
  Report Type: 
  Country: None (occurrence: None)
  Receive Date: 20100608
  Receipt Date: 20100601
  Transmission Date: 20101027
  Serious: Yes (Other)
  Sender: FDA-Public Use
  Company Number: 2010SP030164

PATIENT
  Sex: Female

DRUGS (1)
  1. NUVARING [Suspect]
     Indication: CONTRACEPTION
     Route: 067

REACTIONS (5)
  - AGGRESSION [None]
  - ALOPECIA [None]
  - HERPES VIRUS INFECTION [None]
  - NAUSEA [None]
  - PAIN IN EXTREMITY [None]
